FAERS Safety Report 9141738 (Version 2)
Quarter: 2013Q2

REPORT INFORMATION
  Report Type: Spontaneous
  Country: US (occurrence: US)
  Receive Date: 20130305
  Receipt Date: 20130604
  Transmission Date: 20140414
  Serious: No
  Sender: FDA-Public Use
  Company Number: US-AMGEN-USASP2013011413

PATIENT
  Age: 64 Year
  Sex: Male

DRUGS (2)
  1. ENBREL [Suspect]
     Indication: PSORIASIS
     Dosage: 50 MG, 2 TIMES/WK
     Dates: start: 20130301
  2. METHOTREXATE [Concomitant]
     Dosage: 2.5 MG, 6 TABLETS ONCE A WEEK
     Route: 048
     Dates: start: 2010

REACTIONS (4)
  - Overdose [Unknown]
  - Incorrect dose administered [Unknown]
  - Skin plaque [Not Recovered/Not Resolved]
  - Psoriasis [Not Recovered/Not Resolved]
